FAERS Safety Report 8770115 (Version 3)
Quarter: 2013Q3

REPORT INFORMATION
  Report Type: Report from Study
  Country: JP (occurrence: JP)
  Receive Date: 20120905
  Receipt Date: 20130921
  Transmission Date: 20140515
  Serious: Yes (Hospitalization)
  Sender: FDA-Public Use
  Company Number: JP-009507513-1206USA02398

PATIENT
  Age: 77 Year
  Sex: Male

DRUGS (28)
  1. ZOLINZA CAPSULES 100MG [Suspect]
     Indication: ANAPLASTIC LARGE CELL LYMPHOMA T- AND NULL-CELL TYPES
     Dosage: 400 MG, QD
     Route: 048
     Dates: start: 20111026, end: 20111030
  2. ZOLINZA CAPSULES 100MG [Suspect]
     Dosage: 200 MG, QD
     Route: 048
     Dates: start: 20111114, end: 20111123
  3. ZOLINZA CAPSULES 100MG [Suspect]
     Dosage: 200 MG, QD
     Route: 048
     Dates: start: 20111201, end: 20111211
  4. ZOLINZA CAPSULES 100MG [Suspect]
     Dosage: 100 MG, QD
     Route: 048
     Dates: start: 20111220, end: 20111222
  5. ZOLINZA CAPSULES 100MG [Suspect]
     Dosage: 200 MG, QD
     Route: 048
     Dates: start: 20111223, end: 20111228
  6. ZOLINZA CAPSULES 100MG [Suspect]
     Dosage: 100 MG, QD
     Route: 048
     Dates: start: 20120105, end: 20120112
  7. ZOLINZA CAPSULES 100MG [Suspect]
     Dosage: 200 MG, QD
     Route: 048
     Dates: start: 20120301, end: 20120309
  8. ZOLINZA CAPSULES 100MG [Suspect]
     Dosage: 200 MG, QD
     Route: 048
     Dates: start: 20120313, end: 20120316
  9. ZOLINZA CAPSULES 100MG [Suspect]
     Dosage: 200 MG, QD
     Route: 048
     Dates: start: 20120413, end: 20120415
  10. VELCADE [Suspect]
     Indication: ANAPLASTIC LARGE CELL LYMPHOMA T- AND NULL-CELL TYPES
     Dosage: 2.2 MG, QD
     Route: 042
     Dates: start: 20120313, end: 20120413
  11. DECADRON PHOSPHATE INJECTION [Concomitant]
     Indication: ANAPLASTIC LARGE CELL LYMPHOMA T- AND NULL-CELL TYPES
     Dosage: 33 MG, QD
     Route: 051
     Dates: start: 20111018, end: 20111021
  12. DECADRON PHOSPHATE INJECTION [Concomitant]
     Dosage: 33 MG, QD
     Route: 051
     Dates: start: 20120131, end: 20120413
  13. TAKEPRON [Concomitant]
     Indication: GASTROOESOPHAGEAL REFLUX DISEASE
     Dosage: 15 MG, QD
     Route: 048
     Dates: end: 20120418
  14. URINORM [Concomitant]
     Indication: HYPERURICAEMIA
     Dosage: 50 MG, QD
     Route: 048
     Dates: end: 20120418
  15. TOUGHMAC E [Concomitant]
     Indication: DYSPEPSIA
     Dosage: 1 DF, TID
     Route: 048
     Dates: end: 20120415
  16. MUCOSTA [Concomitant]
     Indication: GASTRITIS
     Dosage: 100 MG, TID
     Route: 048
     Dates: end: 20120418
  17. DEXAMETHASONE [Concomitant]
     Indication: ANAPLASTIC LARGE CELL LYMPHOMA T- AND NULL-CELL TYPES
     Dosage: 10 MG, QD
     Route: 048
     Dates: start: 20111101, end: 20111104
  18. DEXAMETHASONE [Concomitant]
     Dosage: 10 MG, QD
     Route: 048
     Dates: start: 20111212, end: 20120415
  19. GENINAX [Concomitant]
     Indication: BRONCHOPNEUMONIA
     Dosage: 400 MG, QD
     Route: 048
     Dates: start: 20111117, end: 20111121
  20. MYSLEE [Concomitant]
     Indication: INSOMNIA
     Dosage: 10 MG, QD
     Route: 048
     Dates: end: 20120415
  21. PREDONINE [Concomitant]
     Indication: ANAPLASTIC LARGE CELL LYMPHOMA T- AND NULL-CELL TYPES
     Dosage: 10 MG, QD
     Route: 048
     Dates: start: 20120123, end: 20120402
  22. BAKTAR [Concomitant]
     Indication: PROPHYLAXIS
     Dosage: 1 DF, QD
     Route: 048
     Dates: start: 20120123, end: 20120319
  23. PROCARBAZINE HYDROCHLORIDE [Concomitant]
     Indication: ANAPLASTIC LARGE CELL LYMPHOMA T- AND NULL-CELL TYPES
     Dosage: 100 MG, QD
     Route: 048
     Dates: start: 20120113, end: 20120130
  24. BENET [Concomitant]
     Indication: OSTEOPOROSIS
     Dosage: 17.5 MG, QD
     Route: 048
     Dates: start: 20120130, end: 20120410
  25. ORGARAN INTRAVENOUS 1250 UNITS [Concomitant]
     Indication: DISSEMINATED INTRAVASCULAR COAGULATION
     Dosage: 1250 IU, BID
     Route: 042
     Dates: start: 20120229, end: 20120415
  26. BLOOD CELLS, RED [Concomitant]
     Indication: BONE MARROW FAILURE
     Dosage: 2 (UNDER 1000 UNIT), QD
     Route: 042
     Dates: start: 20120217, end: 20120425
  27. PLATELET CONCENTRATE [Concomitant]
     Dosage: 10 (UNDER 1000 UNIT), QD
     Route: 042
     Dates: start: 20120229, end: 20120425
  28. NEUTROGIN [Concomitant]
     Dosage: 100 MICROGRAM, QD
     Route: 051
     Dates: start: 20120310, end: 20120313

REACTIONS (13)
  - Thrombocytopenia [Recovering/Resolving]
  - Lymphopenia [Recovering/Resolving]
  - Neutropenia [Recovering/Resolving]
  - Diarrhoea [Recovering/Resolving]
  - Platelet count decreased [Recovered/Resolved]
  - Platelet count decreased [Recovered/Resolved]
  - Platelet count decreased [Recovering/Resolving]
  - Neutrophil count decreased [Recovering/Resolving]
  - Neutrophil count decreased [Recovering/Resolving]
  - Neutrophil count decreased [Recovering/Resolving]
  - Diarrhoea [Recovered/Resolved]
  - Anaemia [Recovering/Resolving]
  - Lymphopenia [Recovering/Resolving]
